FAERS Safety Report 24879586 (Version 2)
Quarter: 2025Q1

REPORT INFORMATION
  Report Type: Spontaneous
  Country: IT (occurrence: IT)
  Receive Date: 20250123
  Receipt Date: 20250214
  Transmission Date: 20250409
  Serious: Yes (Other)
  Sender: ORGANON
  Company Number: IT-ORGANON-O2501ITA001176

PATIENT
  Age: 34 Year
  Sex: Female

DRUGS (1)
  1. NEXPLANON [Suspect]
     Active Substance: ETONOGESTREL
     Indication: Contraception
     Route: 059
     Dates: start: 20241219, end: 20241230

REACTIONS (2)
  - Pemphigoid [Unknown]
  - Rash [Unknown]

NARRATIVE: CASE EVENT DATE: 20241220
